FAERS Safety Report 7316276-7 (Version None)
Quarter: 2011Q1

REPORT INFORMATION
  Report Type: 
  Country: None (occurrence: None)
  Receive Date: 20110225
  Receipt Date: 20110221
  Transmission Date: 20110831
  Serious: Yes (Life-Threatening, Hospitalization, Disabling)
  Sender: FDA-Public Use
  Company Number: US-B.I. PHARMACEUTICALS,INC./RIDGEFIELD-2011-BP-01640BP

PATIENT
  Age: 81 Year
  Sex: Male
  Weight: 64.41 kg

DRUGS (21)
  1. SENOKOT [Concomitant]
     Route: 048
  2. HYDROCORTISONE [Concomitant]
     Dosage: 20 MG
     Route: 048
  3. HYDROCORTISONE [Concomitant]
     Dosage: 10 MG
     Route: 048
  4. ALDACTONE [Concomitant]
     Dosage: 25 MG
     Route: 048
  5. ZOCOR [Concomitant]
     Route: 048
  6. VITAMIN D [Concomitant]
     Dosage: 1000 U
     Route: 048
  7. K-DUR POTASSIUM [Concomitant]
     Dosage: 40 MEQ
     Route: 048
  8. MULTI-VITAMIN [Concomitant]
     Route: 048
  9. DIGOXIN [Concomitant]
     Route: 048
  10. STEROIDS [Concomitant]
  11. FLOMAX [Concomitant]
     Route: 048
  12. SPIRIVA [Concomitant]
     Dosage: 18 MCG
     Route: 055
  13. PRADAXA [Suspect]
     Indication: ATRIAL FIBRILLATION
     Dosage: 300 MG
     Route: 048
     Dates: start: 20110115, end: 20110125
  14. MULTAQ [Suspect]
     Dosage: 800 MG
     Route: 048
     Dates: start: 20110111
  15. PROVENTIL [Concomitant]
     Route: 055
  16. SYNTHROID [Concomitant]
     Dosage: 50 MCG
     Route: 048
  17. LASIX [Concomitant]
     Dosage: 40 MG
     Route: 048
  18. PROTONIX [Concomitant]
     Dosage: 40 MG
     Route: 048
  19. CARDIZEM CD [Concomitant]
     Dosage: 120 MG
     Route: 048
  20. MIRALAX [Concomitant]
     Dosage: 17 G
     Route: 048
  21. FLUCONAZOLE [Concomitant]
     Dosage: 200 MG
     Route: 048
     Dates: end: 20110124

REACTIONS (11)
  - ACTIVATED PARTIAL THROMBOPLASTIN TIME PROLONGED [None]
  - BLOOD UREA INCREASED [None]
  - BLOOD CREATININE INCREASED [None]
  - RENAL FAILURE ACUTE [None]
  - BLOOD URINE PRESENT [None]
  - HAEMATOCRIT DECREASED [None]
  - COAGULATION TIME PROLONGED [None]
  - PROTHROMBIN TIME PROLONGED [None]
  - APPARENT DEATH [None]
  - BLOOD POTASSIUM INCREASED [None]
  - ATRIOVENTRICULAR BLOCK COMPLETE [None]
